FAERS Safety Report 7799392-5 (Version None)
Quarter: 2011Q4

REPORT INFORMATION
  Report Type: 
  Country: None (occurrence: None)
  Receive Date: 20111006
  Receipt Date: 20110927
  Transmission Date: 20120403
  Serious: Yes (Hospitalization)
  Sender: FDA-Public Use
  Company Number: US-US-EMD SERONO, INC.-7086035

PATIENT
  Sex: Female

DRUGS (1)
  1. REBIF [Suspect]
     Indication: MULTIPLE SCLEROSIS
     Route: 058
     Dates: start: 20100402

REACTIONS (11)
  - HYPOAESTHESIA [None]
  - INJECTION SITE HAEMATOMA [None]
  - INJECTION SITE PAIN [None]
  - CENTRAL NERVOUS SYSTEM INFLAMMATION [None]
  - INJECTION SITE REACTION [None]
  - INJECTION SITE INDURATION [None]
  - VERTIGO [None]
  - CENTRAL NERVOUS SYSTEM LESION [None]
  - INJECTION SITE ERYTHEMA [None]
  - EYE PAIN [None]
  - MOBILITY DECREASED [None]
